FAERS Safety Report 8424911-5 (Version None)
Quarter: 2012Q2

REPORT INFORMATION
  Report Type: 
  Country: None (occurrence: None)
  Receive Date: 20120611
  Receipt Date: 20120605
  Transmission Date: 20120825
  Serious: No
  Sender: FDA-Public Use
  Company Number: US-PFIZER INC-2012135446

PATIENT
  Sex: Female
  Weight: 68.1 kg

DRUGS (3)
  1. LIPITOR [Suspect]
     Indication: BLOOD CHOLESTEROL INCREASED
     Dosage: UNK, 1X/DAY
     Route: 048
  2. ASPIRIN [Concomitant]
     Dosage: UNK
  3. ZETIA [Concomitant]
     Dosage: 10 MG, UNK

REACTIONS (1)
  - DRUG EFFECT DECREASED [None]
